FAERS Safety Report 7240605-6 (Version None)
Quarter: 2011Q1

REPORT INFORMATION
  Report Type: 
  Country: None (occurrence: None)
  Receive Date: 20110118
  Receipt Date: 20110104
  Transmission Date: 20110831
  Serious: Yes (Hospitalization)
  Sender: FDA-Public Use
  Company Number: B0693264A

PATIENT
  Age: 27 Year
  Sex: Male

DRUGS (1)
  1. RANITIDINE HYDROCHLORIDE [Suspect]
     Indication: ABDOMINAL PAIN UPPER

REACTIONS (2)
  - CHOLELITHIASIS [None]
  - HEPATITIS [None]
